FAERS Safety Report 8617495-X (Version None)
Quarter: 2012Q3

REPORT INFORMATION
  Report Type: 
  Country: None (occurrence: None)
  Receive Date: 20120824
  Receipt Date: 20120207
  Transmission Date: 20120928
  Serious: No
  Sender: FDA-Public Use
  Company Number: US-ASTRAZENECA-2011SE65862

PATIENT
  Age: 60 Year
  Sex: Male

DRUGS (3)
  1. SYMBICORT [Suspect]
     Indication: CHRONIC OBSTRUCTIVE PULMONARY DISEASE
     Route: 055
     Dates: start: 20100401, end: 20100501
  2. CRESTOR [Suspect]
     Route: 048
  3. NASONEX [Concomitant]

REACTIONS (2)
  - CHEST PAIN [None]
  - ARTHRITIS [None]
